FAERS Safety Report 24698638 (Version 1)
Quarter: 2024Q4

REPORT INFORMATION
  Report Type: Report from Study
  Country: CO (occurrence: CO)
  Receive Date: 20241204
  Receipt Date: 20241204
  Transmission Date: 20250115
  Serious: Yes (Hospitalization, Other)
  Sender: ABBVIE
  Company Number: CO-ABBVIE-6031259

PATIENT
  Age: 80 Year
  Sex: Female
  Weight: 35 kg

DRUGS (1)
  1. VENCLEXTA [Suspect]
     Active Substance: VENETOCLAX
     Indication: Acute myeloid leukaemia
     Dosage: FORM STRENGTH: 100 MILLIGRAM
     Route: 048
     Dates: start: 20240128

REACTIONS (6)
  - Platelet count decreased [Recovering/Resolving]
  - Immunodeficiency [Recovering/Resolving]
  - Haemoglobin decreased [Recovering/Resolving]
  - Dysstasia [Unknown]
  - Oral fungal infection [Unknown]
  - Urinary tract infection [Unknown]

NARRATIVE: CASE EVENT DATE: 20241101
